FAERS Safety Report 24910266 (Version 4)
Quarter: 2025Q3

REPORT INFORMATION
  Report Type: Spontaneous
  Country: EU (occurrence: EU)
  Receive Date: 20250131
  Receipt Date: 20250810
  Transmission Date: 20251020
  Serious: Yes (Hospitalization, Other)
  Sender: ALEXION PHARMACEUTICALS
  Company Number: EU-SA-2025SA028085

PATIENT
  Age: 11 Month
  Sex: Female

DRUGS (3)
  1. NIRSEVIMAB [Suspect]
     Active Substance: NIRSEVIMAB
     Indication: Respiratory syncytial virus immunisation
     Route: 065
     Dates: start: 20241119, end: 20241119
  2. NIRSEVIMAB [Suspect]
     Active Substance: NIRSEVIMAB
     Route: 065
  3. Vigantol [Concomitant]
     Indication: Supplementation therapy
     Dosage: 1 DROP/DAY (667 IU/DAY)
     Route: 065

REACTIONS (13)
  - Respiratory syncytial virus infection [Recovered/Resolved]
  - Respiratory syncytial virus bronchiolitis [Recovered/Resolved]
  - Drug ineffective [Recovered/Resolved]
  - Hypoxia [Recovered/Resolved]
  - Bronchiolitis [Unknown]
  - Increased upper airway secretion [Recovered/Resolved]
  - Tachypnoea [Recovered/Resolved]
  - Sputum increased [Recovered/Resolved]
  - Use of accessory respiratory muscles [Recovered/Resolved]
  - Wheezing [Recovered/Resolved]
  - Prolonged expiration [Recovered/Resolved]
  - Stridor [Recovered/Resolved]
  - Rales [Recovered/Resolved]

NARRATIVE: CASE EVENT DATE: 20250113
